FAERS Safety Report 4331514-0 (Version None)
Quarter: 2004Q2

REPORT INFORMATION
  Report Type: 
  Country: None (occurrence: None)
  Receive Date: 20040405
  Receipt Date: 20040223
  Transmission Date: 20050107
  Serious: Yes (Hospitalization, Other)
  Sender: FDA-Public Use
  Company Number: PHRM2004FR00984

PATIENT
  Age: 77 Year
  Sex: Male

DRUGS (5)
  1. VOLTAREN [Suspect]
     Indication: SPINAL OSTEOARTHRITIS
     Dosage: 75 MG, BID
     Route: 048
     Dates: start: 19910504, end: 19970401
  2. VOLTAREN [Suspect]
     Dosage: 75 MG, BID
     Route: 048
     Dates: start: 19970901, end: 20040219
  3. DAFALGAN [Concomitant]
  4. TRIATEC [Concomitant]
     Indication: HYPERTENSION
     Dosage: 5 MG, QD
     Route: 048
  5. FLECAINE [Concomitant]
     Indication: EXTRASYSTOLES

REACTIONS (6)
  - BLADDER DISORDER [None]
  - CYSTITIS [None]
  - HAEMATURIA [None]
  - POLLAKIURIA [None]
  - SINUS POLYP [None]
  - URETHRAL ULCER [None]
